FAERS Safety Report 16129016 (Version 2)
Quarter: 2019Q2

REPORT INFORMATION
  Report Type: Report from Study
  Country: FR (occurrence: FR)
  Receive Date: 20190328
  Receipt Date: 20190408
  Transmission Date: 20190711
  Serious: Yes (Other)
  Sender: FDA-Public Use
  Company Number: FR-009507513-1706FRA005225

PATIENT
  Age: 54 Year
  Sex: Male
  Weight: 89 kg

DRUGS (2)
  1. PEMBROLIZUMAB. [Suspect]
     Active Substance: PEMBROLIZUMAB
     Dosage: 2 MG/KG, EVERY 6 WEEKS
     Route: 042
     Dates: start: 20141201
  2. PEMBROLIZUMAB. [Suspect]
     Active Substance: PEMBROLIZUMAB
     Indication: MALIGNANT MELANOMA
     Dosage: UNK
     Dates: start: 20140918

REACTIONS (5)
  - Pruritus [Recovered/Resolved]
  - Thyroiditis [Recovered/Resolved]
  - Asthenia [Recovered/Resolved]
  - Polymyalgia rheumatica [Recovering/Resolving]
  - Asthenia [Unknown]

NARRATIVE: CASE EVENT DATE: 20170306
